FAERS Safety Report 12411934 (Version 1)
Quarter: 2016Q2

REPORT INFORMATION
  Report Type: Spontaneous
  Country: FR (occurrence: FR)
  Receive Date: 20160527
  Receipt Date: 20160527
  Transmission Date: 20160815
  Serious: Yes (Hospitalization)
  Sender: FDA-Public Use
  Company Number: FR-PFIZER INC-2016265597

PATIENT
  Age: 63 Year
  Sex: Female

DRUGS (5)
  1. IFOSFAMIDE EG [Suspect]
     Active Substance: IFOSFAMIDE
     Dosage: 2880 MG, 1X/DAY (2ND COURSE)
     Route: 042
     Dates: start: 20160418, end: 20160419
  2. LOVENOX [Concomitant]
     Active Substance: ENOXAPARIN SODIUM
     Dosage: 400 IU, 1X/DAY
     Route: 058
     Dates: start: 20160326
  3. ADRIBLASTINE [Suspect]
     Active Substance: DOXORUBICIN
     Indication: UTERINE CANCER
     Dosage: 31 MG, 1X/DAY (1ST COURSE)
     Route: 042
     Dates: start: 20160326, end: 20160328
  4. IFOSFAMIDE EG [Suspect]
     Active Substance: IFOSFAMIDE
     Indication: UTERINE CANCER
     Dosage: 3840 MG, 1X/DAY (1ST COURSE)
     Route: 042
     Dates: start: 20160326, end: 20160327
  5. ADRIBLASTINE [Suspect]
     Active Substance: DOXORUBICIN
     Dosage: 23 MG, 1X/DAY (2ND COURSE)
     Route: 042
     Dates: start: 20160418, end: 20160419

REACTIONS (1)
  - Encephalopathy [Recovered/Resolved]

NARRATIVE: CASE EVENT DATE: 20160329
